FAERS Safety Report 5281179-9 (Version None)
Quarter: 2007Q1

REPORT INFORMATION
  Report Type: 
  Country: None (occurrence: None)
  Receive Date: 20070323
  Receipt Date: 20070320
  Transmission Date: 20070707
  Serious: Yes (Life-Threatening, Disabling)
  Sender: FDA-Public Use
  Company Number: TAP2007Q00272

PATIENT
  Age: 89 Year
  Sex: Male

DRUGS (4)
  1. LUPRON DEPOT-3 [Suspect]
     Indication: PROSTATE CANCER
     Dosage: 22.5 MG, 1 IN 3 M, INTRAMUSCULAR
     Route: 030
     Dates: start: 19980101
  2. FLUTAMIDE [Concomitant]
  3. VITAMIN B12 [Concomitant]
  4. NORVASEN [Concomitant]

REACTIONS (5)
  - BRAIN NEOPLASM [None]
  - DECREASED APPETITE [None]
  - READING DISORDER [None]
  - SPEECH DISORDER [None]
  - WEIGHT DECREASED [None]
